FAERS Safety Report 4601435-4 (Version None)
Quarter: 2005Q1

REPORT INFORMATION
  Report Type: 
  Country: None (occurrence: None)
  Receive Date: 20050308
  Receipt Date: 20050225
  Transmission Date: 20050727
  Serious: Yes (Hospitalization)
  Sender: FDA-Public Use
  Company Number: US-GLAXOSMITHKLINE-A0547319A

PATIENT
  Age: 70 Year
  Sex: Female
  Weight: 77 kg

DRUGS (8)
  1. ECOTRIN REGULAR STRENGTH TABLETS [Suspect]
     Route: 048
     Dates: start: 19950101
  2. ZOCOR [Concomitant]
  3. PREVACID [Concomitant]
  4. RAMIPRIL [Concomitant]
  5. IMDUR [Concomitant]
  6. ZETIA [Concomitant]
  7. VIOXX [Concomitant]
  8. VITAMINS [Concomitant]

REACTIONS (1)
  - CORONARY ARTERY OCCLUSION [None]
